FAERS Safety Report 9633534 (Version 1)
Quarter: 2013Q4

REPORT INFORMATION
  Report Type: Spontaneous
  Country: VE (occurrence: VE)
  Receive Date: 20131021
  Receipt Date: 20131021
  Transmission Date: 20140711
  Serious: Yes (Other)
  Sender: FDA-Public Use
  Company Number: PHHY2013VE117832

PATIENT
  Age: 65 Year
  Sex: Female

DRUGS (2)
  1. FORADIL [Suspect]
     Indication: PNEUMONIA
     Dosage: 2 INHALATIONS PER DAY
     Dates: start: 20130524, end: 20131012
  2. SPIRIVA [Concomitant]
     Dosage: 1 INHALATION DAILY

REACTIONS (1)
  - Asphyxia [Not Recovered/Not Resolved]
